FAERS Safety Report 4856837-8 (Version None)
Quarter: 2005Q4

REPORT INFORMATION
  Report Type: 
  Country: None (occurrence: None)
  Receive Date: 20051219
  Receipt Date: 20050126
  Transmission Date: 20060501
  Serious: No
  Sender: FDA-Public Use
  Company Number: US-GLAXOSMITHKLINE-A0542799A

PATIENT

DRUGS (4)
  1. NICODERM CQ [Suspect]
     Dates: start: 20041108, end: 20050124
  2. NICODERM CQ [Suspect]
     Dates: start: 20041108
  3. NICODERM CQ [Suspect]
     Dates: start: 20041108
  4. NICODERM CQ [Suspect]
     Dates: start: 20041108

REACTIONS (8)
  - ABNORMAL DREAMS [None]
  - APPLICATION SITE BLEEDING [None]
  - APPLICATION SITE DERMATITIS [None]
  - APPLICATION SITE PRURITUS [None]
  - DRUG WITHDRAWAL SYNDROME [None]
  - FATIGUE [None]
  - FEELING ABNORMAL [None]
  - INSOMNIA [None]
